FAERS Safety Report 23015198 (Version 2)
Quarter: 2023Q4

REPORT INFORMATION
  Report Type: Report from Study
  Country: FR (occurrence: FR)
  Receive Date: 20231002
  Receipt Date: 20231020
  Transmission Date: 20240109
  Serious: Yes (Death)
  Sender: FDA-Public Use
  Company Number: FR-MIRATI-MT2023PM04965

PATIENT
  Sex: Female
  Weight: 57 kg

DRUGS (3)
  1. KRAZATI [Suspect]
     Active Substance: ADAGRASIB
     Indication: Lung neoplasm malignant
     Dosage: 600 MG, BID
     Dates: start: 20230825, end: 20230925
  2. MORPHINE [Concomitant]
     Active Substance: MORPHINE
     Indication: Pain
     Dosage: UNK
     Dates: start: 20230830, end: 20230925
  3. PREDNISONE [Concomitant]
     Active Substance: PREDNISONE
     Dosage: 40 MG, QD
     Dates: start: 20230830, end: 20230925

REACTIONS (10)
  - Asthenia [Fatal]
  - Nausea [Unknown]
  - Weight decreased [Unknown]
  - General physical health deterioration [Unknown]
  - Malnutrition [Unknown]
  - Pain [Unknown]
  - Hypotension [Unknown]
  - Bone lesion [Unknown]
  - Haemoglobin decreased [Recovered/Resolved]
  - Oedema peripheral [Unknown]

NARRATIVE: CASE EVENT DATE: 20230904
